FAERS Safety Report 7650332-9 (Version None)
Quarter: 2011Q3

REPORT INFORMATION
  Report Type: 
  Country: None (occurrence: None)
  Receive Date: 20110719
  Receipt Date: 20110411
  Transmission Date: 20111222
  Serious: Yes (Other)
  Sender: FDA-Public Use
  Company Number: 163-50794-11032470

PATIENT
  Age: 63 Year
  Sex: Male
  Weight: 79.8331 kg

DRUGS (4)
  1. VIDAZA [Suspect]
     Indication: ACUTE LEUKAEMIA
     Dosage: 150 MCG, DAILY X 7 DAYS EVERY 28 DAYS, IV
     Route: 042
     Dates: start: 20110215, end: 20110223
  2. AVELOX (MOXIFLOXACIN HYDROCHLORIDE) (UNKNOWN) [Concomitant]
  3. ZOFRAN [Concomitant]
  4. EMEND (APREPITANT) (UNKNOWN) [Concomitant]

REACTIONS (1)
  - NEUTROPHIL COUNT DECREASED [None]
